FAERS Safety Report 17104995 (Version 3)
Quarter: 2021Q1

REPORT INFORMATION
  Report Type: Report from Study
  Country: None (occurrence: JP)
  Receive Date: 20191203
  Receipt Date: 20210202
  Transmission Date: 20210419
  Serious: Yes (Hospitalization)
  Sender: FDA-Public Use
  Company Number: JP-ABBVIE-19K-087-3174410-00

PATIENT
  Age: 49 Year
  Sex: Female
  Weight: 54 kg

DRUGS (12)
  1. DUODOPA [Suspect]
     Active Substance: CARBIDOPA\LEVODOPA
     Dosage: MD: 7.0 ML?CD: 5.1 ML/HR X 16 HRS?ED: 2.5 ML/UNIT X 3
     Route: 050
     Dates: start: 20201111, end: 20201202
  2. DROXIDOPA [Concomitant]
     Active Substance: DROXIDOPA
     Indication: FREEZING PHENOMENON
  3. DROXIDOPA [Concomitant]
     Active Substance: DROXIDOPA
     Indication: PARKINSON^S DISEASE
     Route: 048
  4. DUODOPA [Suspect]
     Active Substance: CARBIDOPA\LEVODOPA
     Indication: PARKINSON^S DISEASE
     Route: 050
     Dates: start: 20180207, end: 20180214
  5. DUODOPA [Suspect]
     Active Substance: CARBIDOPA\LEVODOPA
     Dosage: MD 4.8ML?CD 2.8ML X 16 HOURS?ED 1.0 X 3 TIMES
     Route: 050
     Dates: start: 20180214, end: 20200227
  6. DUODOPA [Suspect]
     Active Substance: CARBIDOPA\LEVODOPA
     Dosage: MD:7.0 ML?CD: 4.8 ML/HR  X 16 HRS?ED: 2.0 ML/UNIT X 2 TIMES
     Route: 050
     Dates: start: 20200227, end: 20201028
  7. DUODOPA [Suspect]
     Active Substance: CARBIDOPA\LEVODOPA
     Dosage: MD: 7.0 ML?CD: 4.9 ML/HR X 16 HRS?ED: 2.5 ML/UNIT X 3
     Route: 050
     Dates: start: 20201028, end: 20201111
  8. DUODOPA [Suspect]
     Active Substance: CARBIDOPA\LEVODOPA
     Dosage: MD: 7.0 ML?CD: 5.3 ML/HR X 16 HRS?ED: 2.5 ML/UNIT X 3
     Route: 050
     Dates: start: 20201202
  9. ISTRADEFYLLINE [Concomitant]
     Active Substance: ISTRADEFYLLINE
     Indication: PARKINSON^S DISEASE
     Route: 048
  10. ZONISAMIDE. [Concomitant]
     Active Substance: ZONISAMIDE
     Indication: PARKINSON^S DISEASE
     Route: 048
  11. ROTIGOTINE [Concomitant]
     Active Substance: ROTIGOTINE
     Indication: PARKINSON^S DISEASE
     Route: 062
  12. ROTIGOTINE [Concomitant]
     Active Substance: ROTIGOTINE
     Route: 062

REACTIONS (5)
  - Malaise [Unknown]
  - Device dislocation [Recovered/Resolved]
  - Intentional product misuse [Unknown]
  - On and off phenomenon [Recovered/Resolved]
  - General physical condition abnormal [Unknown]

NARRATIVE: CASE EVENT DATE: 20180216
